FAERS Safety Report 6361640-6 (Version None)
Quarter: 2009Q3

REPORT INFORMATION
  Report Type: 
  Country: None (occurrence: None)
  Receive Date: 20090915
  Receipt Date: 20090915
  Transmission Date: 20100115
  Serious: Yes (Other)
  Sender: FDA-Public Use
  Company Number: None

PATIENT
  Age: 27 Year
  Sex: Female
  Weight: 81.6475 kg

DRUGS (1)
  1. LOESTRIN 1.5/30 [Suspect]
     Indication: CONTRACEPTION
     Dosage: 1 DAY PO
     Route: 048
     Dates: start: 20090301, end: 20090316

REACTIONS (6)
  - ABNORMAL BEHAVIOUR [None]
  - ANGER [None]
  - IMPAIRED DRIVING ABILITY [None]
  - IRRITABILITY [None]
  - SUICIDAL BEHAVIOUR [None]
  - WEIGHT INCREASED [None]
